FAERS Safety Report 10674729 (Version 1)
Quarter: 2014Q4

REPORT INFORMATION
  Report Type: Spontaneous
  Country: US (occurrence: None)
  Receive Date: 20141223
  Receipt Date: 20141223
  Transmission Date: 20150529
  Serious: Yes (Other)
  Sender: FDA-Public Use
  Company Number: None

PATIENT
  Age: 36 Year
  Sex: Female

DRUGS (7)
  1. AMPYRA [Suspect]
     Active Substance: DALFAMPRIDINE
     Indication: MULTIPLE SCLEROSIS
     Route: 048
     Dates: start: 201304
  2. COPAXONE [Concomitant]
     Active Substance: GLATIRAMER ACETATE
  3. HUMALOG [Concomitant]
     Active Substance: INSULIN LISPRO
  4. SPRINTEC 2F [Concomitant]
  5. ZESTRIL [Concomitant]
     Active Substance: LISINOPRIL
  6. AMPYRA [Concomitant]
     Active Substance: DALFAMPRIDINE
  7. MEVACOR [Concomitant]
     Active Substance: LOVASTATIN

REACTIONS (2)
  - Urinary tract infection [None]
  - Hyperglycaemia [None]

NARRATIVE: CASE EVENT DATE: 20141203
